FAERS Safety Report 7294615-3 (Version None)
Quarter: 2011Q1

REPORT INFORMATION
  Report Type: 
  Country: None (occurrence: None)
  Receive Date: 20110216
  Receipt Date: 20090721
  Transmission Date: 20110831
  Serious: No
  Sender: FDA-Public Use
  Company Number: 2009BI022701

PATIENT
  Sex: Male

DRUGS (2)
  1. ANTI-DEPRESSANT (NOS) [Concomitant]
     Indication: DEPRESSION
  2. TYSABRI [Suspect]
     Indication: MULTIPLE SCLEROSIS
     Route: 042
     Dates: start: 20090630, end: 20101104

REACTIONS (14)
  - FATIGUE [None]
  - FALL [None]
  - MENTAL IMPAIRMENT [None]
  - BURNOUT SYNDROME [None]
  - AFFECTIVE DISORDER [None]
  - DEPRESSED MOOD [None]
  - CLUMSINESS [None]
  - BALANCE DISORDER [None]
  - EATING DISORDER [None]
  - MOBILITY DECREASED [None]
  - DRUG INEFFECTIVE [None]
  - STRESS [None]
  - HYPOAESTHESIA ORAL [None]
  - MEMORY IMPAIRMENT [None]
